FAERS Safety Report 14757474 (Version 1)
Quarter: 2018Q2

REPORT INFORMATION
  Report Type: Spontaneous
  Country: ZA (occurrence: ZA)
  Receive Date: 20180413
  Receipt Date: 20180413
  Transmission Date: 20180711
  Serious: Yes (Hospitalization)
  Sender: FDA-Public Use
  Company Number: ZA-PFIZER INC-2018151508

PATIENT
  Age: 48 Year
  Sex: Female

DRUGS (10)
  1. CELEBREX [Suspect]
     Active Substance: CELECOXIB
     Dosage: 200 MG, UNK
  2. METHOTREXATE SODIUM. [Suspect]
     Active Substance: METHOTREXATE SODIUM
     Dosage: 2.5 MG, UNK
  3. GLUCOPHAGE XR [Suspect]
     Active Substance: METFORMIN HYDROCHLORIDE
     Dosage: 500 MG, UNK
  4. ZOPICLONE SANDOZ [Suspect]
     Active Substance: ZOPICLONE
     Dosage: 7.5 MG, UNK
  5. BE-TABS PREDNISONE [Suspect]
     Active Substance: PREDNISONE
     Dosage: 5 MG, UNK
  6. BE-TABS FOLIC ACID [Suspect]
     Active Substance: FOLIC ACID
     Dosage: 5 MG, UNK
  7. EUTHYROX [Suspect]
     Active Substance: LEVOTHYROXINE SODIUM
     Dosage: 100 UG, UNK
  8. CIPRALEX [Suspect]
     Active Substance: ESCITALOPRAM OXALATE
     Dosage: 10 MG, UNK
  9. LIPANTHYL [Suspect]
     Active Substance: FENOFIBRATE
     Dosage: 200 MG, UNK
  10. STORWIN [Suspect]
     Active Substance: ROSUVASTATIN CALCIUM
     Dosage: 10 MG, UNK

REACTIONS (1)
  - Urinary tract infection [Unknown]
